FAERS Safety Report 18026037 (Version 3)
Quarter: 2022Q1

REPORT INFORMATION
  Report Type: Report from Study
  Country: GT (occurrence: GT)
  Receive Date: 20200715
  Receipt Date: 20220217
  Transmission Date: 20220423
  Serious: Yes (Other)
  Sender: FDA-Public Use
  Company Number: GT-NOVARTISPH-NVSC2020GT197100

PATIENT
  Age: 81 Year
  Sex: Female

DRUGS (1)
  1. SACUBITRIL\VALSARTAN [Suspect]
     Active Substance: SACUBITRIL\VALSARTAN
     Indication: Product used for unknown indication
     Dosage: 100 MG
     Route: 065

REACTIONS (7)
  - Diabetes mellitus [Unknown]
  - Gastritis [Unknown]
  - Hypertension [Unknown]
  - Decreased appetite [Unknown]
  - Weight decreased [Unknown]
  - Eating disorder [Unknown]
  - Oral discomfort [Unknown]
